FAERS Safety Report 5858447-2 (Version None)
Quarter: 2008Q3

REPORT INFORMATION
  Report Type: 
  Country: None (occurrence: None)
  Receive Date: 20080826
  Receipt Date: 20080814
  Transmission Date: 20090109
  Serious: Yes (Death, Hospitalization)
  Sender: FDA-Public Use
  Company Number: PHHO2007CH13678

PATIENT
  Sex: Female
  Weight: 51 kg

DRUGS (2)
  1. ERL 080A ERL+TAB [Suspect]
     Indication: LUNG TRANSPLANT
     Dosage: 1800 MG
     Route: 048
     Dates: start: 20070508, end: 20070816
  2. ERL 080A ERL+TAB [Suspect]
     Dosage: 360 MG 2 X 4
     Route: 048
     Dates: end: 20080531

REACTIONS (11)
  - C-REACTIVE PROTEIN INCREASED [None]
  - COUGH [None]
  - INFECTION [None]
  - LUNG TRANSPLANT [None]
  - MULTI-ORGAN FAILURE [None]
  - OBLITERATIVE BRONCHIOLITIS [None]
  - PULMONARY FUNCTION TEST DECREASED [None]
  - RESPIRATORY TRACT INFECTION [None]
  - RHINITIS [None]
  - SEPSIS [None]
  - TRACHEOBRONCHITIS [None]
